FAERS Safety Report 8023857-4 (Version None)
Quarter: 2012Q1

REPORT INFORMATION
  Report Type: 
  Country: None (occurrence: None)
  Receive Date: 20120105
  Receipt Date: 20111229
  Transmission Date: 20120608
  Serious: Yes (Hospitalization, Other)
  Sender: FDA-Public Use
  Company Number: US-SANOFI-AVENTIS-2012SA000529

PATIENT
  Sex: Female

DRUGS (3)
  1. LANTUS [Suspect]
     Dosage: SLIDING SCALE IN THE EVENING, ALSO REPORTED AS 3 X  A DAY  (12 UNITS, 10 UNITS, 12 UNITS)
     Route: 058
     Dates: start: 20090101
  2. SOLOSTAR [Suspect]
     Dates: start: 20090101
  3. NOVOLOG [Concomitant]

REACTIONS (5)
  - LIMB OPERATION [None]
  - BLOOD GLUCOSE INCREASED [None]
  - ARTHROPATHY [None]
  - INJECTION SITE PAIN [None]
  - KNEE ARTHROPLASTY [None]
